FAERS Safety Report 7455918-2 (Version None)
Quarter: 2011Q2

REPORT INFORMATION
  Report Type: 
  Country: None (occurrence: None)
  Receive Date: 20110503
  Receipt Date: 20110418
  Transmission Date: 20111010
  Serious: Yes (Hospitalization)
  Sender: FDA-Public Use
  Company Number: JP-JNJFOC-20110408991

PATIENT
  Sex: Female
  Weight: 56 kg

DRUGS (15)
  1. BONOTEO [Concomitant]
     Route: 048
  2. REMICADE [Suspect]
     Route: 042
  3. ISONIAZID [Concomitant]
     Indication: ANTIBIOTIC PROPHYLAXIS
     Route: 048
  4. TACROLIMUS HYDRATE [Concomitant]
     Route: 065
  5. ULCERLMIN [Concomitant]
     Route: 048
  6. CRESTOR [Concomitant]
     Route: 048
  7. AZULFIDINE [Concomitant]
     Route: 048
  8. LAC-B [Concomitant]
     Route: 048
  9. REMICADE [Suspect]
     Route: 042
  10. PREDNISOLONE [Concomitant]
     Route: 065
  11. LIMETHASON [Concomitant]
     Indication: RHEUMATOID ARTHRITIS
     Route: 065
  12. REMICADE [Suspect]
     Indication: RHEUMATOID ARTHRITIS
     Route: 042
  13. RHEUMATREX [Suspect]
     Indication: RHEUMATOID ARTHRITIS
     Route: 048
  14. TAKEPRON [Concomitant]
     Route: 048
  15. LOXONIN [Concomitant]
     Route: 048

REACTIONS (1)
  - TUBERCULOUS PLEURISY [None]
